FAERS Safety Report 7782276-6 (Version None)
Quarter: 2011Q3

REPORT INFORMATION
  Report Type: 
  Country: None (occurrence: None)
  Receive Date: 20110927
  Receipt Date: 20110922
  Transmission Date: 20111222
  Serious: Yes (Hospitalization, Other)
  Sender: FDA-Public Use
  Company Number: US-MERCK-1105USA01177

PATIENT
  Age: 56 Year
  Sex: Female
  Weight: 80 kg

DRUGS (5)
  1. FOSAMAX [Suspect]
     Indication: OSTEOPOROSIS
     Route: 048
     Dates: start: 20011001, end: 20080701
  2. FOSAMAX [Suspect]
     Route: 048
     Dates: end: 20011022
  3. HYDROCHLOROTHIAZIDE [Concomitant]
     Indication: URINE CALCIUM
     Route: 065
     Dates: start: 19620101
  4. HORMONES (UNSPECIFIED) [Concomitant]
     Route: 065
     Dates: start: 19950101, end: 20050101
  5. POTASSIUM CHLORIDE [Concomitant]
     Route: 065
     Dates: start: 19620101

REACTIONS (31)
  - PYELONEPHRITIS [None]
  - NEPHROLITHIASIS [None]
  - OSTEOARTHRITIS [None]
  - MYOCARDIAL ISCHAEMIA [None]
  - TRICUSPID VALVE INCOMPETENCE [None]
  - SPONDYLOLISTHESIS [None]
  - MALAISE [None]
  - DEEP VEIN THROMBOSIS [None]
  - MEDIAL TIBIAL STRESS SYNDROME [None]
  - SUBCUTANEOUS ABSCESS [None]
  - SPINAL OSTEOARTHRITIS [None]
  - HAEMATURIA [None]
  - BLOOD OESTROGEN ABNORMAL [None]
  - PULMONARY GRANULOMA [None]
  - FEMUR FRACTURE [None]
  - ACTINIC KERATOSIS [None]
  - ARTHRALGIA [None]
  - RIGHT VENTRICULAR SYSTOLIC PRESSURE INCREASED [None]
  - HYPERLIPIDAEMIA [None]
  - DERMAL CYST [None]
  - DIVERTICULUM INTESTINAL [None]
  - STAPHYLOCOCCAL INFECTION [None]
  - SEPSIS [None]
  - PALPITATIONS [None]
  - OSTEOPOROSIS [None]
  - TACHYCARDIA [None]
  - ARTHROPATHY [None]
  - CARPAL TUNNEL SYNDROME [None]
  - BREAST MASS [None]
  - BREAST CANCER [None]
  - HYPOTENSION [None]
